FAERS Safety Report 9524591 (Version 1)
Quarter: 2013Q3

REPORT INFORMATION
  Report Type: Spontaneous
  Country: US (occurrence: US)
  Receive Date: 20130916
  Receipt Date: 20130916
  Transmission Date: 20140515
  Serious: No
  Sender: FDA-Public Use
  Company Number: US-PFIZER INC-2013263025

PATIENT
  Age: 73 Year
  Sex: Male

DRUGS (5)
  1. SUTENT [Suspect]
     Dosage: 50 MG, CYCLIC (QDX4WKS, OFF 2 WKS)
     Route: 048
     Dates: start: 20130817
  2. HYDRALAZINE [Concomitant]
     Dosage: UNK
  3. AMLODIPINE [Concomitant]
     Dosage: UNK
  4. PLAVIX [Concomitant]
     Dosage: UNK
  5. ATORVASTATIN [Concomitant]
     Dosage: UNK

REACTIONS (2)
  - Fatigue [Unknown]
  - Ageusia [Unknown]
